FAERS Safety Report 4551325-0 (Version None)
Quarter: 2005Q1

REPORT INFORMATION
  Report Type: 
  Country: None (occurrence: None)
  Receive Date: 20050110
  Receipt Date: 20050104
  Transmission Date: 20050727
  Serious: Yes (Hospitalization, Other)
  Sender: FDA-Public Use
  Company Number: FRWYE312904JAN05

PATIENT
  Age: 74 Year
  Sex: Female

DRUGS (6)
  1. EFFEXOR [Suspect]
     Indication: DEPRESSION
     Dosage: 75 MG 2X PER 1 DAY
     Route: 048
     Dates: start: 20040215, end: 20041114
  2. EFFEXOR [Suspect]
     Indication: DEPRESSION
     Dosage: 75 MG 2X PER 1 DAY
     Route: 048
     Dates: start: 20040101
  3. ALDACTAZINE (ALTIZIDE/SPIRONOLACTONE) [Suspect]
     Indication: HYPERTENSION
     Dosage: 1 TABLET 1X PER 1 DAY
     Route: 048
     Dates: start: 20041112, end: 20041114
  4. UNSPECIFIED BETA BLOCKER (UNSPECIFIED BETA BLOCKER) [Concomitant]
  5. LORAZEPAM [Concomitant]
  6. LEVOTHYROXINE (LEVOTHYROXINE SODIUM) [Concomitant]

REACTIONS (5)
  - FALL [None]
  - HYPOKALAEMIA [None]
  - HYPONATRAEMIA [None]
  - MALAISE [None]
  - NAUSEA [None]
